FAERS Safety Report 8569444-0 (Version None)
Quarter: 2012Q3

REPORT INFORMATION
  Report Type: 
  Country: None (occurrence: None)
  Receive Date: 20120803
  Receipt Date: 20120529
  Transmission Date: 20120928
  Serious: No
  Sender: FDA-Public Use
  Company Number: US-ABBOTT-12P-163-0941653-00

PATIENT
  Sex: Male
  Weight: 104.42 kg

DRUGS (9)
  1. LEVOTHYROXINE SODIUM [Concomitant]
     Indication: THYROID DISORDER
  2. SINGULAIR [Concomitant]
     Indication: HYPERSENSITIVITY
  3. EYE DROPS [Concomitant]
     Indication: GLAUCOMA
  4. NASAL SPRAY [Concomitant]
     Indication: HYPERSENSITIVITY
  5. VYTORIN [Concomitant]
     Indication: CARDIAC DISORDER
  6. NIASPAN [Suspect]
     Indication: BLOOD CHOLESTEROL
     Route: 048
     Dates: start: 20120501
  7. PLAVIX [Concomitant]
     Indication: CARDIAC DISORDER
  8. METOPROLOL TARTRATE [Concomitant]
     Indication: CARDIAC DISORDER
  9. AMBIEN [Concomitant]
     Indication: INSOMNIA

REACTIONS (8)
  - ABDOMINAL DISCOMFORT [None]
  - ERYTHEMA [None]
  - DYSPEPSIA [None]
  - FAECES PALE [None]
  - PARAESTHESIA [None]
  - HEADACHE [None]
  - DYSPNOEA [None]
  - ASTHENIA [None]
